FAERS Safety Report 9720662 (Version 3)
Quarter: 2013Q4

REPORT INFORMATION
  Report Type: Spontaneous
  Country: JP (occurrence: JP)
  Receive Date: 20131129
  Receipt Date: 20131217
  Transmission Date: 20140711
  Serious: Yes (Death, Life-Threatening, Hospitalization, Disabling)
  Sender: FDA-Public Use
  Company Number: PHHY2013JP137205

PATIENT
  Age: 31 Year
  Sex: Female

DRUGS (2)
  1. CICLOSPORIN [Suspect]
     Indication: GRAFT VERSUS HOST DISEASE
     Route: 048
  2. PREDNISOLONE [Suspect]
     Indication: GRAFT VERSUS HOST DISEASE

REACTIONS (15)
  - Acute respiratory distress syndrome [Fatal]
  - Respiratory failure [Fatal]
  - Necrotising fasciitis [Not Recovered/Not Resolved]
  - Blood blister [Unknown]
  - Pain [Unknown]
  - Local swelling [Unknown]
  - Swelling face [Unknown]
  - Muscle necrosis [Unknown]
  - Fungal infection [Not Recovered/Not Resolved]
  - Skin ulcer [Unknown]
  - Myalgia [Unknown]
  - Erythema [Unknown]
  - Swelling [Unknown]
  - Cellulitis [Unknown]
  - Drug level fluctuating [Unknown]
